FAERS Safety Report 19654832 (Version 1)
Quarter: 2021Q3

REPORT INFORMATION
  Report Type: Spontaneous
  Country: PL (occurrence: PL)
  Receive Date: 20210804
  Receipt Date: 20210804
  Transmission Date: 20211014
  Serious: Yes (Hospitalization, Other)
  Sender: FDA-Public Use
  Company Number: PL-AUROBINDO-AUR-APL-2019-091598

PATIENT
  Age: 85 Year
  Sex: Female

DRUGS (5)
  1. FURAZIDIN [Concomitant]
     Active Substance: FURAZIDINE
     Indication: PRODUCT USED FOR UNKNOWN INDICATION
     Dosage: UNK
     Route: 065
  2. RIVAROXABAN [Suspect]
     Active Substance: RIVAROXABAN
     Indication: ANTIPLATELET THERAPY
     Dosage: 15 MILLIGRAM, ONCE A DAY
     Route: 065
  3. CLOPIDOGREL [Suspect]
     Active Substance: CLOPIDOGREL BISULFATE
     Indication: ANTIPLATELET THERAPY
     Dosage: 75 MILLIGRAM, ONCE A DAY
     Route: 065
  4. AMIODARONE [Suspect]
     Active Substance: AMIODARONE
     Indication: ARRHYTHMIA
     Route: 065
  5. ASPIRIN. [Suspect]
     Active Substance: ASPIRIN
     Indication: ANTIPLATELET THERAPY
     Dosage: 75 MILLIGRAM, ONCE A DAY
     Route: 065

REACTIONS (7)
  - Hypotension [Unknown]
  - Gastrointestinal haemorrhage [Unknown]
  - Anaemia [Unknown]
  - Renal impairment [Unknown]
  - Asthenia [Unknown]
  - Melaena [Unknown]
  - Embolism arterial [Unknown]
